FAERS Safety Report 16750472 (Version 2)
Quarter: 2019Q4

REPORT INFORMATION
  Report Type: Spontaneous
  Country: US (occurrence: US)
  Receive Date: 20190828
  Receipt Date: 20191101
  Transmission Date: 20200122
  Serious: No
  Sender: FDA-Public Use
  Company Number: US-PFIZER INC-2019368342

PATIENT
  Age: 64 Year
  Sex: Female
  Weight: 56.7 kg

DRUGS (5)
  1. CIPROFLOXACIN. [Concomitant]
     Active Substance: CIPROFLOXACIN
     Indication: DIVERTICULITIS
     Dosage: 500 MG, UNK
     Dates: start: 20190809, end: 201908
  2. SUCRALFATE. [Concomitant]
     Active Substance: SUCRALFATE
     Dosage: 1 G, UNK
     Dates: start: 20190908
  3. METOPROLOL. [Concomitant]
     Active Substance: METOPROLOL
     Indication: BLOOD PRESSURE ABNORMAL
     Dosage: UNK
     Dates: start: 2013
  4. FLAGYL [Suspect]
     Active Substance: METRONIDAZOLE\METRONIDAZOLE HYDROCHLORIDE
     Indication: DIVERTICULITIS
     Dosage: 500 MG, 2X/DAY FOR 10 DAYS
     Dates: start: 20190809, end: 20190818
  5. SYNTHROID [Concomitant]
     Active Substance: LEVOTHYROXINE SODIUM
     Dosage: UNK
     Dates: start: 2008

REACTIONS (10)
  - Mouth ulceration [Not Recovered/Not Resolved]
  - Oral pain [Not Recovered/Not Resolved]
  - Speech disorder [Unknown]
  - Oral mucosal blistering [Not Recovered/Not Resolved]
  - Eating disorder [Not Recovered/Not Resolved]
  - Rash [Unknown]
  - Stomatitis [Not Recovered/Not Resolved]
  - Dysphagia [Not Recovered/Not Resolved]
  - Hypersensitivity [Unknown]
  - Emotional distress [Unknown]

NARRATIVE: CASE EVENT DATE: 201908
